FAERS Safety Report 6836632-0 (Version None)
Quarter: 2010Q3

REPORT INFORMATION
  Report Type: 
  Country: None (occurrence: None)
  Receive Date: 20100713
  Receipt Date: 20100706
  Transmission Date: 20110219
  Serious: Yes (Hospitalization)
  Sender: FDA-Public Use
  Company Number: PHHY2010CL06236

PATIENT
  Age: 79 Year
  Sex: Male

DRUGS (2)
  1. EXELON [Suspect]
     Indication: DEMENTIA ALZHEIMER'S TYPE
     Dosage: 1 DF, QD
     Route: 062
     Dates: end: 20100201
  2. ENALAPRIL MALEATE AND HYDROCHLOROTHIAZIDE [Concomitant]

REACTIONS (1)
  - RECTAL HAEMORRHAGE [None]
